FAERS Safety Report 8286375-4 (Version None)
Quarter: 2012Q2

REPORT INFORMATION
  Report Type: 
  Country: None (occurrence: None)
  Receive Date: 20120411
  Receipt Date: 20120411
  Transmission Date: 20120825
  Serious: Yes (Life-Threatening, Hospitalization, Disabling, Other)
  Sender: FDA-Public Use
  Company Number: None

PATIENT
  Sex: Female
  Weight: 53.5244 kg

DRUGS (1)
  1. METHOTREXATE [Suspect]
     Indication: RHEUMATOID ARTHRITIS
     Dosage: 1 SHOT - 25MG WEEKLY ONE TIME ONLY
     Dates: start: 20111109

REACTIONS (9)
  - STOMATITIS [None]
  - HYPOPHAGIA [None]
  - THROMBOSIS [None]
  - URINARY RETENTION [None]
  - HAEMOGLOBIN DECREASED [None]
  - HEPATIC ENZYME ABNORMAL [None]
  - DYSPHONIA [None]
  - PULMONARY THROMBOSIS [None]
  - INSOMNIA [None]
